FAERS Safety Report 6520425-8 (Version None)
Quarter: 2009Q4

REPORT INFORMATION
  Report Type: 
  Country: None (occurrence: None)
  Receive Date: 20091229
  Receipt Date: 20091216
  Transmission Date: 20100525
  Serious: Yes (Hospitalization)
  Sender: FDA-Public Use
  Company Number: PHHY2009AU42845

PATIENT
  Sex: Male

DRUGS (4)
  1. CLOZARIL [Suspect]
     Indication: SCHIZOPHRENIA
     Dosage: 400 MG, UNK
     Dates: start: 20060323, end: 20090615
  2. CLOZARIL [Suspect]
     Dosage: 400 MG
     Dates: start: 20090615, end: 20090923
  3. CLOZARIL [Suspect]
     Dosage: 300 MG
     Dates: start: 20091006
  4. CLOZARIL [Suspect]
     Dosage: 400 MG
     Dates: start: 20091013

REACTIONS (2)
  - MENTAL DISORDER [None]
  - SCHIZOPHRENIA [None]
